FAERS Safety Report 4928157-4 (Version None)
Quarter: 2006Q1

REPORT INFORMATION
  Report Type: 
  Country: None (occurrence: None)
  Receive Date: 20060223
  Receipt Date: 20060207
  Transmission Date: 20060701
  Serious: Yes (Death, Other)
  Sender: FDA-Public Use
  Company Number: DE200511003240

PATIENT
  Age: 58 Year
  Sex: Female

DRUGS (5)
  1. ZYPREXA [Suspect]
     Indication: SCHIZOPHRENIA
     Dosage: 10 MG, DAILY (1/D), UNK
     Dates: start: 20040101
  2. FLUANXOL (FLUPENTIXOL DIHYDROCHLORIDE) [Concomitant]
  3. LORAZEPAM [Concomitant]
  4. PANTOZOL     /GFR/(PANTOPRAZOLE SODIUM) [Concomitant]
  5. ASPIRIN [Concomitant]

REACTIONS (6)
  - ASPIRATION [None]
  - BACK PAIN [None]
  - BLOOD PRESSURE INCREASED [None]
  - GASTRIC HAEMORRHAGE [None]
  - GASTRIC MUCOSAL LESION [None]
  - INFECTION [None]
